FAERS Safety Report 9705232 (Version 2)
Quarter: 2014Q1

REPORT INFORMATION
  Report Type: Report from Study
  Country: CA (occurrence: CA)
  Receive Date: 20131122
  Receipt Date: 20140318
  Transmission Date: 20141002
  Serious: Yes (Hospitalization, Other)
  Sender: FDA-Public Use
  Company Number: CA-BAYER-2013-139843

PATIENT
  Age: 70 Year
  Sex: Female

DRUGS (4)
  1. ASPIRIN [Suspect]
     Indication: TRANSIENT ISCHAEMIC ATTACK
     Dosage: 81MG DAILY
  2. CLOPIDOGREL [Suspect]
     Dosage: 75 MG, QD
     Route: 065
  3. HEPARIN SODIUM [Suspect]
     Dosage: 2000 UNITS
     Route: 042
  4. HEPARIN SODIUM [Suspect]
     Dosage: 3000 IU
     Route: 042

REACTIONS (7)
  - Drug ineffective [Recovering/Resolving]
  - Hemiparesis [Recovering/Resolving]
  - Heparin-induced thrombocytopenia [Recovering/Resolving]
  - Hypoaesthesia [Recovering/Resolving]
  - Infarction [Recovering/Resolving]
  - Thrombosis [Recovering/Resolving]
  - Thrombosis in device [Recovering/Resolving]
